FAERS Safety Report 9940146 (Version 1)
Quarter: 2014Q1

REPORT INFORMATION
  Report Type: Report from Study
  Country: US (occurrence: US)
  Receive Date: 20140303
  Receipt Date: 20140303
  Transmission Date: 20141002
  Serious: No
  Sender: FDA-Public Use
  Company Number: US-ABBVIE-13P-163-1032836-00

PATIENT
  Age: 33 Year
  Sex: Female

DRUGS (7)
  1. HUMIRA [Suspect]
     Indication: PSORIASIS
     Dates: end: 201207
  2. HUMIRA [Suspect]
     Dates: start: 201210
  3. LUXIQ [Concomitant]
     Dosage: FOAM
  4. LEXAPRO [Concomitant]
     Indication: PRODUCT USED FOR UNKNOWN INDICATION
     Dosage: DAILY
  5. LEVOTHYROXINE [Concomitant]
     Indication: PRODUCT USED FOR UNKNOWN INDICATION
  6. LABETALOL [Concomitant]
     Indication: BLOOD PRESSURE
  7. PRENATAL VITAMINS [Concomitant]
     Indication: PRODUCT USED FOR UNKNOWN INDICATION

REACTIONS (5)
  - Drug dose omission [Recovering/Resolving]
  - Device malfunction [Recovering/Resolving]
  - Wrong technique in drug usage process [Recovering/Resolving]
  - Inappropriate schedule of drug administration [Recovering/Resolving]
  - Psoriasis [Recovering/Resolving]
